FAERS Safety Report 15786936 (Version 1)
Quarter: 2019Q1

REPORT INFORMATION
  Report Type: Spontaneous
  Country: US (occurrence: US)
  Receive Date: 20190103
  Receipt Date: 20190103
  Transmission Date: 20190417
  Serious: Yes (Hospitalization)
  Sender: FDA-Public Use
  Company Number: US-AMREGENT-20181737

PATIENT
  Age: 88 Year
  Sex: Male

DRUGS (17)
  1. LIQUACEL [Concomitant]
     Dosage: UNKNOWN
     Route: 065
  2. ASPIRIN LOW DOSE [Concomitant]
     Active Substance: ASPIRIN
     Dosage: UNKNOWN
     Route: 065
  3. LORAZEPAM. [Concomitant]
     Active Substance: LORAZEPAM
     Dosage: UNKNOWN
     Route: 065
  4. MEGACE ORAL [Concomitant]
     Dosage: UNKNOWN
     Route: 048
  5. TRAVATAN Z [Concomitant]
     Active Substance: TRAVOPROST
     Dosage: UNKNOWN
     Route: 065
  6. DORZOLAMIDE HYDROCHLORIDE. [Concomitant]
     Active Substance: DORZOLAMIDE HYDROCHLORIDE
     Dosage: UNKNOWN
     Route: 065
  7. VELTASSA [Suspect]
     Active Substance: PATIROMER
     Dosage: 8.4 GM,1 IN 1 D
     Route: 048
     Dates: start: 20180426, end: 2018
  8. MIRCERA [Concomitant]
     Active Substance: METHOXY POLYETHYLENE GLYCOL-EPOETIN BETA
     Dosage: UNKNOWN
     Route: 065
  9. TAMSULOSIN HYDROCHLORIDE. [Concomitant]
     Active Substance: TAMSULOSIN HYDROCHLORIDE
     Dosage: UNKNOWN
     Route: 065
  10. VITAMIN D [Concomitant]
     Active Substance: CHOLECALCIFEROL
     Dosage: UNKNOWN
     Route: 065
  11. SIMVASTATIN. [Concomitant]
     Active Substance: SIMVASTATIN
     Dosage: UNKNOWN
     Route: 065
  12. VENOFER [Suspect]
     Active Substance: IRON SUCROSE
     Dosage: UNKNOWN
     Route: 065
  13. NEPRO [Concomitant]
     Active Substance: DIETARY SUPPLEMENT
     Dosage: UNKNOWN
     Route: 065
  14. LEVOTHYROXINE. [Concomitant]
     Active Substance: LEVOTHYROXINE
     Dosage: UNKNOWN
     Route: 065
  15. ACETAMINOPHEN. [Concomitant]
     Active Substance: ACETAMINOPHEN
     Dosage: UNKNOWN
     Route: 065
  16. MIDODRINE HYDROCHLORIDE. [Concomitant]
     Active Substance: MIDODRINE HYDROCHLORIDE
     Dosage: UNKNOWN
     Route: 065
  17. CALCIUM ACETATE. [Concomitant]
     Active Substance: CALCIUM ACETATE
     Dosage: UNKNOWN
     Route: 065

REACTIONS (4)
  - Malaise [Unknown]
  - Haemorrhage [Unknown]
  - Product dose omission [Unknown]
  - Dialysis [Unknown]

NARRATIVE: CASE EVENT DATE: 2018
